FAERS Safety Report 6023485-6 (Version None)
Quarter: 2008Q4

REPORT INFORMATION
  Report Type: 
  Country: None (occurrence: None)
  Receive Date: 20081230
  Receipt Date: 20081223
  Transmission Date: 20090506
  Serious: Yes (Life-Threatening, Hospitalization, Disabling, Other)
  Sender: FDA-Public Use
  Company Number: US-MERCK-0812USA03370

PATIENT
  Age: 82 Year
  Sex: Female

DRUGS (14)
  1. JANUVIA [Suspect]
     Indication: DIABETES MELLITUS
     Route: 048
     Dates: start: 20081001, end: 20081126
  2. COUMADIN [Concomitant]
     Route: 065
  3. HYDRALAZINE [Concomitant]
     Route: 065
  4. LASIX [Concomitant]
     Route: 065
  5. CLONIDINE [Concomitant]
     Route: 065
  6. TRICOR [Concomitant]
     Route: 065
  7. ZOCOR [Concomitant]
     Route: 048
  8. PROCRIT [Concomitant]
     Route: 065
  9. LANTUS [Concomitant]
     Route: 065
  10. STARLIX [Concomitant]
     Route: 048
  11. POTASSIUM (UNSPECIFIED) [Concomitant]
     Route: 065
  12. PREMPRO [Concomitant]
     Route: 065
  13. COREG [Concomitant]
     Route: 065
  14. MAVIK [Concomitant]
     Route: 065

REACTIONS (3)
  - CARDIOMEGALY [None]
  - PANCREATITIS [None]
  - THYROID FUNCTION TEST ABNORMAL [None]
